FAERS Safety Report 22242668 (Version 2)
Quarter: 2023Q2

REPORT INFORMATION
  Report Type: Report from Study
  Country: US (occurrence: US)
  Receive Date: 20230424
  Receipt Date: 20230512
  Transmission Date: 20230721
  Serious: Yes (Hospitalization)
  Sender: FDA-Public Use
  Company Number: US-KARYOPHARM-2023KPT001120

PATIENT
  Age: 70 Year
  Sex: Male
  Weight: 74.1 kg

DRUGS (4)
  1. SELINEXOR [Suspect]
     Active Substance: SELINEXOR
     Indication: Plasma cell myeloma
     Dosage: 60 MG, ON WEEKS 1, 2, AND 3 OF A 28-DAY CYCLE
     Route: 048
     Dates: start: 20221108, end: 20230412
  2. DARATUMUMAB [Suspect]
     Active Substance: DARATUMUMAB
     Indication: Plasma cell myeloma
     Dosage: 1800 MG, 1X/2 WEEKS STARTING CYCLE 3
     Route: 058
     Dates: start: 20221115, end: 20230412
  3. LENALIDOMIDE [Suspect]
     Active Substance: LENALIDOMIDE
     Indication: Plasma cell myeloma
     Dosage: 15 MG, DAYS 1-21 OF 28-DAY CYCLE
     Route: 048
     Dates: start: 20221115, end: 20230412
  4. DEXAMETHASONE [Suspect]
     Active Substance: DEXAMETHASONE
     Indication: Plasma cell myeloma
     Dosage: 40 MG, WEEKLY
     Route: 048
     Dates: start: 20221108, end: 20230412

REACTIONS (2)
  - Atrial fibrillation [Recovered/Resolved]
  - Pneumonitis [Not Recovered/Not Resolved]

NARRATIVE: CASE EVENT DATE: 20230412
